FAERS Safety Report 5157779-3 (Version None)
Quarter: 2006Q4

REPORT INFORMATION
  Report Type: 
  Country: None (occurrence: None)
  Receive Date: 20061127
  Receipt Date: 20051012
  Transmission Date: 20070319
  Serious: Yes (Hospitalization, Disabling)
  Sender: FDA-Public Use
  Company Number: US-ROCHE-421066

PATIENT
  Age: 46 Year
  Sex: Female
  Weight: 136.1 kg

DRUGS (3)
  1. COPEGUS [Suspect]
     Indication: HEPATITIS C
     Route: 048
     Dates: start: 20050708
  2. PEG-INTRON [Suspect]
     Indication: HEPATITIS C
     Route: 058
     Dates: start: 20050708
  3. TYLENOL [Concomitant]
     Dosage: EXTRA STRENGTH TABLETS.
     Route: 048

REACTIONS (8)
  - ANAEMIA [None]
  - BLOOD GLUCOSE DECREASED [None]
  - DYSPNOEA [None]
  - FATIGUE [None]
  - HAEMOGLOBIN DECREASED [None]
  - LOSS OF CONSCIOUSNESS [None]
  - REFUSAL OF TREATMENT BY PATIENT [None]
  - SYNCOPE [None]
